FAERS Safety Report 8548189-7 (Version None)
Quarter: 2012Q3

REPORT INFORMATION
  Report Type: 
  Country: None (occurrence: None)
  Receive Date: 20120730
  Receipt Date: 20120719
  Transmission Date: 20120928
  Serious: Yes (Other)
  Sender: FDA-Public Use
  Company Number: US-BIOGENIDEC-2012BI026551

PATIENT
  Age: 50 Year
  Sex: Female

DRUGS (4)
  1. AVONEX [Suspect]
     Route: 030
     Dates: start: 20110301
  2. AVONEX [Suspect]
     Route: 030
     Dates: start: 20110423, end: 20120607
  3. AVONEX [Suspect]
     Indication: MULTIPLE SCLEROSIS
     Route: 030
  4. AVONEX [Suspect]
     Route: 030
     Dates: start: 20120614, end: 20120623

REACTIONS (1)
  - CEREBRAL SARCOIDOSIS [None]
